FAERS Safety Report 7030945-8 (Version None)
Quarter: 2010Q4

REPORT INFORMATION
  Report Type: 
  Country: None (occurrence: None)
  Receive Date: 20101006
  Receipt Date: 20100929
  Transmission Date: 20110411
  Serious: Yes (Death, Hospitalization)
  Sender: FDA-Public Use
  Company Number: FR-B.I. PHARMACEUTICALS,INC./RIDGEFIELD-2010-DE-05468GD

PATIENT
  Age: 48 Year
  Sex: Male
  Weight: 50 kg

DRUGS (6)
  1. CLONIDINE [Suspect]
     Dosage: 1 MCG/KG/H INFUSION
  2. ORAMORPH SR [Suspect]
     Indication: SEDATIVE THERAPY
     Dosage: 10 MG
  3. PROPOFOL [Suspect]
     Indication: SEDATIVE THERAPY
     Dosage: 25-50 MG/H
  4. NORADRENALINE [Suspect]
     Indication: SEPTIC SHOCK
     Dosage: 3 MCG/KG/MIN
  5. ANTIBIOTICS [Concomitant]
     Indication: SEPTIC SHOCK
  6. STEROIDS [Concomitant]
     Indication: SEPTIC SHOCK
     Dosage: LOW-DOSE

REACTIONS (4)
  - DRUG INTERACTION [None]
  - HYPOTENSION [None]
  - OLIGURIA [None]
  - SEPTIC SHOCK [None]
